FAERS Safety Report 23235617 (Version 7)
Quarter: 2024Q2

REPORT INFORMATION
  Report Type: Spontaneous
  Country: US (occurrence: US)
  Receive Date: 20231128
  Receipt Date: 20240417
  Transmission Date: 20240716
  Serious: Yes (Other)
  Sender: FDA-Public Use
  Company Number: US-PFIZER INC-PV202300190574

PATIENT
  Age: 68 Year
  Sex: Female

DRUGS (4)
  1. IBRANCE [Suspect]
     Active Substance: PALBOCICLIB
     Indication: Neoplasm malignant
     Dosage: UNK
  2. IBRANCE [Suspect]
     Active Substance: PALBOCICLIB
     Dosage: 100 MG
  3. LETROZOLE [Suspect]
     Active Substance: LETROZOLE
     Indication: Neoplasm malignant
     Dosage: UNK
  4. FASLODEX [Concomitant]
     Active Substance: FULVESTRANT
     Indication: Neoplasm malignant
     Dosage: UNK

REACTIONS (30)
  - Thrombocytopenia [Not Recovered/Not Resolved]
  - Neutropenia [Unknown]
  - Neoplasm progression [Unknown]
  - Epistaxis [Recovered/Resolved]
  - Rash erythematous [Unknown]
  - Cough [Unknown]
  - Chest discomfort [Unknown]
  - Chest pain [Recovered/Resolved]
  - Joint swelling [Not Recovered/Not Resolved]
  - Peripheral swelling [Not Recovered/Not Resolved]
  - Fatigue [Not Recovered/Not Resolved]
  - Somnolence [Not Recovered/Not Resolved]
  - Contusion [Not Recovered/Not Resolved]
  - Dyspepsia [Recovered/Resolved]
  - Rash [Unknown]
  - Oropharyngeal pain [Unknown]
  - Haemorrhage [Recovered/Resolved]
  - Skin ulcer [Recovered/Resolved]
  - Nasal ulcer [Recovered/Resolved]
  - Swelling [Unknown]
  - Scar [Unknown]
  - Erythema [Unknown]
  - Platelet disorder [Unknown]
  - Decreased immune responsiveness [Unknown]
  - Illness [Unknown]
  - Insomnia [Unknown]
  - Heart rate increased [Unknown]
  - Blood pressure increased [Unknown]
  - Lacrimation increased [Unknown]
  - Sinus disorder [Unknown]
